FAERS Safety Report 22831347 (Version 3)
Quarter: 2023Q4

REPORT INFORMATION
  Report Type: Report from Study
  Country: BR (occurrence: BR)
  Receive Date: 20230817
  Receipt Date: 20231128
  Transmission Date: 20240109
  Serious: Yes (Other)
  Sender: FDA-Public Use
  Company Number: BR-CELLTRION INC.-2022BR015929

PATIENT

DRUGS (6)
  1. INFLIXIMAB [Suspect]
     Active Substance: INFLIXIMAB
     Indication: Colitis ulcerative
     Dosage: 3 AMPOULES EVERY 8 WEEKS
     Route: 042
     Dates: start: 2021
  2. INFLIXIMAB [Suspect]
     Active Substance: INFLIXIMAB
     Dosage: 3 AMPOULES EVERY 8 WEEKS
     Route: 042
     Dates: start: 202209
  3. INFLIXIMAB [Suspect]
     Active Substance: INFLIXIMAB
     Dosage: 3 AMPOULES EVERY 8 WEEKS/HIS LAST INFUSION WAS CARRIED OUT ON 08/AUG/2023
     Route: 042
     Dates: start: 20230808
  4. INSULIN NOS [Concomitant]
     Active Substance: INSULIN NOS
     Indication: Diabetes mellitus
     Dosage: 20 ML NPH+ 10 REGULAR (MORNING)- 12 ML NPH+ 6 ML REGULAR (AFTERNOON)
     Route: 030
     Dates: start: 2005
  5. OLMESARTAN MEDOXOMIL AND HYDROCHLOROTHIAZIDE [Concomitant]
     Active Substance: HYDROCHLOROTHIAZIDE\OLMESARTAN MEDOXOMIL
     Indication: Hypertension
     Dosage: 1 PILL A DAY
     Route: 048
     Dates: start: 20230801
  6. ATENOLOL [Concomitant]
     Active Substance: ATENOLOL
     Indication: Hypertension
     Dosage: 2 PILLS A DAY
     Route: 048
     Dates: start: 20230801

REACTIONS (12)
  - Haematochezia [Not Recovered/Not Resolved]
  - Haemorrhage [Unknown]
  - Frequent bowel movements [Not Recovered/Not Resolved]
  - Polydipsia [Not Recovered/Not Resolved]
  - Polyuria [Not Recovered/Not Resolved]
  - Discomfort [Recovered/Resolved]
  - Hypoaesthesia [Unknown]
  - Peripheral swelling [Unknown]
  - Hypertension [Unknown]
  - Bronchitis [Recovered/Resolved]
  - Intentional dose omission [Not Recovered/Not Resolved]
  - Therapeutic response unexpected [Not Recovered/Not Resolved]

NARRATIVE: CASE EVENT DATE: 20230301
